FAERS Safety Report 9489962 (Version 2)
Quarter: 2013Q3

REPORT INFORMATION
  Report Type: Spontaneous
  Country: IN (occurrence: IN)
  Receive Date: 20130829
  Receipt Date: 20130925
  Transmission Date: 20140515
  Serious: Yes (Death, Other)
  Sender: FDA-Public Use
  Company Number: IN-MERCK-1308IND014294

PATIENT
  Age: 65 Year
  Sex: 0

DRUGS (1)
  1. JANUMET [Suspect]
     Dosage: STRENGTH 50/500 (NO UNITS PROVIDED), 1 TAB/DAY
     Route: 048

REACTIONS (2)
  - Cerebrovascular accident [Fatal]
  - Haematemesis [Unknown]
